FAERS Safety Report 25706715 (Version 1)
Quarter: 2025Q3

REPORT INFORMATION
  Report Type: Spontaneous
  Country: US (occurrence: US)
  Receive Date: 20250820
  Receipt Date: 20250820
  Transmission Date: 20251021
  Serious: No
  Sender: SANOFI AVENTIS
  Company Number: US-SA-2025SA247774

PATIENT
  Age: 64 Year
  Sex: Male

DRUGS (2)
  1. DUPIXENT [Suspect]
     Active Substance: DUPILUMAB
     Indication: Eczema
     Dosage: 300 MG, QOW
     Route: 058
     Dates: start: 202504, end: 202504
  2. NEMLUVIO [Concomitant]
     Active Substance: NEMOLIZUMAB-ILTO

REACTIONS (3)
  - Eye pain [Recovered/Resolved]
  - Arthralgia [Recovered/Resolved]
  - Incorrect dose administered [Unknown]

NARRATIVE: CASE EVENT DATE: 20250401
